FAERS Safety Report 12167282 (Version 2)
Quarter: 2016Q1

REPORT INFORMATION
  Report Type: Report from Study
  Country: DE (occurrence: DE)
  Receive Date: 20160310
  Receipt Date: 20160316
  Transmission Date: 20160526
  Serious: Yes (Hospitalization)
  Sender: FDA-Public Use
  Company Number: DE-ROCHE-1722738

PATIENT
  Age: 54 Year
  Sex: Female

DRUGS (21)
  1. URBASON [Concomitant]
     Active Substance: METHYLPREDNISOLONE
     Dosage: LEFT EYE,
     Route: 048
     Dates: start: 20150708, end: 20150928
  2. COSOPT [Concomitant]
     Active Substance: DORZOLAMIDE HYDROCHLORIDE\TIMOLOL MALEATE
     Indication: OPEN ANGLE GLAUCOMA
     Dosage: 1 DROP, TOPICAL, RIGHT EYE
     Route: 047
     Dates: start: 20140508
  3. MONOPROST [Concomitant]
     Active Substance: LATANOPROST
     Dosage: RIGHT EYE, 1 DROP TOPICAL
     Route: 047
     Dates: start: 20150708
  4. RANIBIZUMAB [Suspect]
     Active Substance: RANIBIZUMAB
     Route: 050
     Dates: start: 20140729, end: 20140729
  5. MONOPROST [Concomitant]
     Active Substance: LATANOPROST
     Route: 065
     Dates: start: 20160308
  6. ACETYLSALICYLIC ACID [Concomitant]
     Active Substance: ASPIRIN
     Route: 065
     Dates: start: 20160308
  7. COSOPT [Concomitant]
     Active Substance: DORZOLAMIDE HYDROCHLORIDE\TIMOLOL MALEATE
     Route: 065
     Dates: start: 20130724
  8. COSOPT [Concomitant]
     Active Substance: DORZOLAMIDE HYDROCHLORIDE\TIMOLOL MALEATE
     Dosage: 1 DROP, TOPICAL, LEFT EYE
     Route: 047
     Dates: start: 20150708
  9. ALPHAGAN P [Concomitant]
     Active Substance: BRIMONIDINE TARTRATE
     Route: 065
     Dates: start: 20150708
  10. DEXA-SINE [Concomitant]
     Dosage: RIGHT EYE, 1 DROP, TOPICAL
     Route: 047
     Dates: start: 20150918, end: 20151021
  11. PREDNISOLONE. [Concomitant]
     Active Substance: PREDNISOLONE
     Dosage: LEFT EYE, 1 DROP, TOPICAL
     Route: 047
     Dates: start: 20150708, end: 20150723
  12. ALPHAGAN P [Concomitant]
     Active Substance: BRIMONIDINE TARTRATE
     Route: 065
     Dates: start: 20160308
  13. RANIBIZUMAB [Suspect]
     Active Substance: RANIBIZUMAB
     Route: 050
     Dates: start: 20150511
  14. DEXA EDO [Concomitant]
     Active Substance: DEXAMETHASONE SODIUM PHOSPHATE
     Indication: PROPHYLAXIS
     Dosage: TOPICAL, LEFT EYE
     Route: 047
     Dates: end: 20150708
  15. PREDNISOLONE. [Concomitant]
     Active Substance: PREDNISOLONE
     Dosage: RIGHT EYE, 1 DROP, TOPICAL
     Route: 047
     Dates: start: 20150925, end: 20150928
  16. RANIBIZUMAB [Suspect]
     Active Substance: RANIBIZUMAB
     Indication: NEOVASCULAR AGE-RELATED MACULAR DEGENERATION
     Route: 050
     Dates: start: 20130819
  17. FLOXAL [Concomitant]
     Active Substance: OFLOXACIN
     Indication: PROPHYLAXIS
     Dosage: TOPICAL
     Route: 047
     Dates: start: 20150624, end: 20150708
  18. ALPHAGAN P [Concomitant]
     Active Substance: BRIMONIDINE TARTRATE
     Indication: OPEN ANGLE GLAUCOMA
     Route: 065
     Dates: start: 20130724
  19. ALPHAGAN P [Concomitant]
     Active Substance: BRIMONIDINE TARTRATE
     Dosage: RIGHT EYE DROP TOPICAL
     Route: 047
     Dates: start: 20140508
  20. MONOPROST [Concomitant]
     Active Substance: LATANOPROST
     Indication: OPEN ANGLE GLAUCOMA
     Dosage: RIGHT EYE, 1 DROP TOPICAL
     Route: 047
     Dates: start: 20140508
  21. RAMIPRIL. [Concomitant]
     Active Substance: RAMIPRIL
     Indication: HYPERTENSION
     Route: 048
     Dates: start: 20160308

REACTIONS (4)
  - Intraocular pressure increased [Recovered/Resolved]
  - Open angle glaucoma [Recovering/Resolving]
  - Intraocular pressure increased [Recovered/Resolved]
  - Intraocular pressure test abnormal [Not Recovered/Not Resolved]

NARRATIVE: CASE EVENT DATE: 20141205
